FAERS Safety Report 5113864-3 (Version None)
Quarter: 2006Q3

REPORT INFORMATION
  Report Type: 
  Country: None (occurrence: None)
  Receive Date: 20060921
  Receipt Date: 20060921
  Transmission Date: 20061208
  Serious: No
  Sender: FDA-Public Use
  Company Number: None

PATIENT
  Age: 44 Year
  Sex: Male
  Weight: 77.1115 kg

DRUGS (1)
  1. FEXOFENADINE HCL AND PSEUDOEPHEDRINE HCL [Suspect]
     Indication: RHINITIS ALLERGIC
     Dosage: BID
     Dates: start: 20060716

REACTIONS (4)
  - ANXIETY [None]
  - DISCOMFORT [None]
  - HEADACHE [None]
  - SOMNOLENCE [None]
